FAERS Safety Report 11471759 (Version 1)
Quarter: 2015Q3

REPORT INFORMATION
  Report Type: Report from Study
  Country: CA (occurrence: CA)
  Receive Date: 20150908
  Receipt Date: 20150908
  Transmission Date: 20151125
  Serious: Yes (Other)
  Sender: FDA-Public Use
  Company Number: CA-JNJFOC-20150904024

PATIENT
  Age: 46 Year
  Sex: Female
  Weight: 56 kg

DRUGS (6)
  1. REMICADE [Suspect]
     Active Substance: INFLIXIMAB
     Indication: CROHN^S DISEASE
     Route: 042
     Dates: start: 20150608
  2. ACETAMINOPHEN. [Concomitant]
     Active Substance: ACETAMINOPHEN
     Route: 048
  3. FAMCICLOVIR. [Concomitant]
     Active Substance: FAMCICLOVIR
     Route: 065
  4. IRON SUPPLEMENTS [Concomitant]
     Active Substance: IRON
     Route: 065
  5. REMICADE [Suspect]
     Active Substance: INFLIXIMAB
     Indication: ANKYLOSING SPONDYLITIS
     Route: 042
     Dates: start: 20150608
  6. PANTOLOC [Concomitant]
     Active Substance: PANTOPRAZOLE SODIUM
     Route: 065

REACTIONS (3)
  - Arthralgia [Unknown]
  - Intestinal resection [Unknown]
  - Constipation [Unknown]

NARRATIVE: CASE EVENT DATE: 20150722
